FAERS Safety Report 7428320-7 (Version None)
Quarter: 2011Q2

REPORT INFORMATION
  Report Type: 
  Country: None (occurrence: None)
  Receive Date: 20110421
  Receipt Date: 20110415
  Transmission Date: 20111010
  Serious: No
  Sender: FDA-Public Use
  Company Number: US-BIOGENIDEC-2011BI014619

PATIENT
  Age: 51 Year
  Sex: Female

DRUGS (3)
  1. ACETAMINOPHEN [Concomitant]
  2. BENADRYL [Concomitant]
     Route: 042
  3. TYSABRI [Suspect]
     Indication: MULTIPLE SCLEROSIS
     Route: 042
     Dates: start: 20100715

REACTIONS (2)
  - PARAESTHESIA [None]
  - SOMNOLENCE [None]
